FAERS Safety Report 6039933-1 (Version None)
Quarter: 2009Q1

REPORT INFORMATION
  Report Type: 
  Country: None (occurrence: None)
  Receive Date: 20090116
  Receipt Date: 20071218
  Transmission Date: 20090719
  Serious: No
  Sender: FDA-Public Use
  Company Number: US-BRISTOL-MYERS SQUIBB COMPANY-13726161

PATIENT
  Age: 37 Year
  Sex: Female

DRUGS (4)
  1. ABILIFY [Suspect]
     Indication: BIPOLAR DISORDER
     Dosage: INITIATED 4 YEARS AGO AT 20 MG/DAY THEN DECREASED TO 5 MG/DAY 6MONTHS AGO
     Route: 048
     Dates: start: 20030101, end: 20071009
  2. ZESTRIL [Concomitant]
  3. CALTRATE + D [Concomitant]
  4. CALCIUM [Concomitant]

REACTIONS (4)
  - BLOOD PRESSURE DECREASED [None]
  - ERYTHEMA [None]
  - RASH [None]
  - SOMNOLENCE [None]
